FAERS Safety Report 16964897 (Version 1)
Quarter: 2019Q4

REPORT INFORMATION
  Report Type: Spontaneous
  Country: US (occurrence: US)
  Receive Date: 20191028
  Receipt Date: 20191028
  Transmission Date: 20200122
  Serious: Yes (Other)
  Sender: FDA-Public Use
  Company Number: US-AUROBINDO-AUR-APL-2019-068165

PATIENT
  Age: 65 Year
  Sex: Female

DRUGS (1)
  1. VORICONAZOLE. [Suspect]
     Active Substance: VORICONAZOLE
     Indication: ANTIFUNGAL PROPHYLAXIS
     Dosage: UNK UNK, DAILY
     Route: 065

REACTIONS (6)
  - Pain in extremity [Recovering/Resolving]
  - Bone pain [Unknown]
  - Joint swelling [Unknown]
  - Blood alkaline phosphatase increased [Unknown]
  - Peripheral swelling [Not Recovered/Not Resolved]
  - Periostitis [Unknown]
